FAERS Safety Report 15776265 (Version 1)
Quarter: 2018Q4

REPORT INFORMATION
  Report Type: Spontaneous
  Country: NL (occurrence: NL)
  Receive Date: 20181231
  Receipt Date: 20181231
  Transmission Date: 20190205
  Serious: Yes (Hospitalization)
  Sender: FDA-Public Use
  Company Number: NL-NOVOPROD-639351

PATIENT
  Age: 89 Year
  Sex: Female

DRUGS (2)
  1. RYZODEG 70/30 [Suspect]
     Active Substance: INSULIN ASPART\INSULIN DEGLUDEC
     Indication: TYPE 2 DIABETES MELLITUS
     Dosage: 28 IU, QD
     Route: 058
     Dates: start: 201703
  2. PREDNISON [Concomitant]
     Active Substance: PREDNISONE
     Indication: RHEUMATIC DISORDER
     Dosage: 5 MG, QD
     Route: 048

REACTIONS (3)
  - Blood glucose decreased [Recovered/Resolved]
  - Hospitalisation [Unknown]
  - Blood glucose increased [Not Recovered/Not Resolved]
